FAERS Safety Report 13222751 (Version 1)
Quarter: 2017Q1

REPORT INFORMATION
  Report Type: Spontaneous
  Country: US (occurrence: US)
  Receive Date: 20170212
  Receipt Date: 20170212
  Transmission Date: 20170428
  Serious: No
  Sender: FDA-Public Use
  Company Number: US-ACORDA-ACO_121793_2016

PATIENT
  Sex: Female

DRUGS (1)
  1. AMPYRA [Suspect]
     Active Substance: DALFAMPRIDINE
     Indication: PRODUCT USED FOR UNKNOWN INDICATION
     Dosage: 10 MG, BID
     Route: 065

REACTIONS (6)
  - Ataxia [Unknown]
  - Vitamin D deficiency [Unknown]
  - Affective disorder [Unknown]
  - Gait disturbance [Unknown]
  - Central nervous system lesion [Unknown]
  - Asthenia [Unknown]
